FAERS Safety Report 11538733 (Version 1)
Quarter: 2015Q3

REPORT INFORMATION
  Report Type: Spontaneous
  Country: US (occurrence: None)
  Receive Date: 20150921
  Receipt Date: 20150921
  Transmission Date: 20151125
  Serious: Yes (Other)
  Sender: FDA-Public Use
  Company Number: None

PATIENT
  Age: 61 Year
  Sex: Female
  Weight: 63.5 kg

DRUGS (14)
  1. ZANFLEX [Concomitant]
  2. LAX [Concomitant]
  3. VITAMIN C [Concomitant]
     Active Substance: ASCORBIC ACID
  4. VIT D 3 [Concomitant]
  5. VALIUM [Concomitant]
     Active Substance: DIAZEPAM
  6. XANAX [Concomitant]
     Active Substance: ALPRAZOLAM
  7. VITAMIN B12 [Concomitant]
     Active Substance: CYANOCOBALAMIN
  8. BYSTOLIC [Concomitant]
     Active Substance: NEBIVOLOL HYDROCHLORIDE
  9. SUPPLEMENTS [Concomitant]
     Active Substance: UNSPECIFIED INGREDIENT
  10. BIOTIN [Concomitant]
     Active Substance: BIOTIN
  11. MORPHINE [Concomitant]
     Active Substance: MORPHINE
  12. LIVER SUPPORT [Concomitant]
  13. HORIZANT [Suspect]
     Active Substance: GABAPENTIN ENACARBIL
     Indication: PAIN
     Dosage: 1 AT DINNER
     Route: 048
     Dates: start: 20150918, end: 20150918
  14. NATURE-THOID [Concomitant]

REACTIONS (5)
  - Feeling abnormal [None]
  - Fatigue [None]
  - Dyspnoea [None]
  - Dizziness [None]
  - Pruritus generalised [None]

NARRATIVE: CASE EVENT DATE: 20150918
